FAERS Safety Report 8509711-X (Version None)
Quarter: 2012Q3

REPORT INFORMATION
  Report Type: 
  Country: None (occurrence: None)
  Receive Date: 20120713
  Receipt Date: 20120711
  Transmission Date: 20120928
  Serious: Yes (Life-Threatening, Hospitalization, Other)
  Sender: FDA-Public Use
  Company Number: AT-ABBOTT-12P-009-0955167-00

PATIENT
  Sex: Male
  Weight: 72 kg

DRUGS (3)
  1. AQUAPHORIL [Concomitant]
     Indication: PRODUCT USED FOR UNKNOWN INDICATION
     Dosage: 1-0-0 ON DEMAND
  2. HUMIRA [Suspect]
     Indication: PSORIASIS
     Route: 058
     Dates: start: 20120518, end: 20120710
  3. PANTOPRAZOLE SODIUM [Concomitant]
     Indication: PRODUCT USED FOR UNKNOWN INDICATION
     Dosage: 1-0-0

REACTIONS (7)
  - CHILLS [None]
  - DERMATITIS EXFOLIATIVE [None]
  - DEHYDRATION [None]
  - HYPERKERATOSIS PALMARIS AND PLANTARIS [None]
  - INSOMNIA [None]
  - SKIN EXFOLIATION [None]
  - PRURITUS [None]
